FAERS Safety Report 6032907-6 (Version None)
Quarter: 2009Q1

REPORT INFORMATION
  Report Type: 
  Country: None (occurrence: None)
  Receive Date: 20090107
  Receipt Date: 20090107
  Transmission Date: 20090719
  Serious: Yes (Death)
  Sender: FDA-Public Use
  Company Number: None

PATIENT
  Age: 68 Year
  Sex: Female
  Weight: 34.47 kg

DRUGS (1)
  1. DURAGESIC-100 [Suspect]

REACTIONS (1)
  - TOXICOLOGIC TEST ABNORMAL [None]
